FAERS Safety Report 9922473 (Version 2)
Quarter: 2014Q1

REPORT INFORMATION
  Report Type: Spontaneous
  Country: US (occurrence: US)
  Receive Date: 20140225
  Receipt Date: 20140225
  Transmission Date: 20141002
  Serious: No
  Sender: FDA-Public Use
  Company Number: US-MYLANLABS-2013S1019785

PATIENT
  Age: 70 Year
  Sex: Female

DRUGS (4)
  1. ATENOLOL TABLETS, USP [Suspect]
     Indication: HYPERTENSION
     Route: 048
     Dates: start: 20130211, end: 20130829
  2. ATENOLOL TABLETS, USP [Suspect]
     Indication: HYPERTENSION
     Route: 048
     Dates: start: 20130830
  3. ASPIRIN [Concomitant]
     Route: 048
  4. VITAMIN [Concomitant]

REACTIONS (4)
  - Drug effect increased [Recovered/Resolved]
  - Blood pressure decreased [Recovered/Resolved]
  - Alopecia [Recovering/Resolving]
  - Blood cholesterol increased [Not Recovered/Not Resolved]
